FAERS Safety Report 13097265 (Version 1)
Quarter: 2017Q1

REPORT INFORMATION
  Report Type: Spontaneous
  Country: US (occurrence: US)
  Receive Date: 20170109
  Receipt Date: 20170109
  Transmission Date: 20170428
  Serious: No
  Sender: FDA-Public Use
  Company Number: US-PFIZER INC-2017007879

PATIENT
  Age: 65 Year
  Sex: Female

DRUGS (2)
  1. NEURONTIN [Suspect]
     Active Substance: GABAPENTIN
     Indication: MUSCLE INJURY
  2. NEURONTIN [Suspect]
     Active Substance: GABAPENTIN
     Indication: NERVE INJURY
     Dosage: 200 MG, 3X/DAY
     Route: 048
     Dates: start: 2012

REACTIONS (1)
  - Drug ineffective for unapproved indication [Not Recovered/Not Resolved]
